FAERS Safety Report 6342598-2 (Version None)
Quarter: 2009Q3

REPORT INFORMATION
  Report Type: 
  Country: None (occurrence: None)
  Receive Date: 20090908
  Receipt Date: 20090831
  Transmission Date: 20100115
  Serious: Yes (Hospitalization, Other)
  Sender: FDA-Public Use
  Company Number: IE-JNJFOC-20090901567

PATIENT
  Age: 43 Year
  Sex: Male

DRUGS (2)
  1. FENTANYL TRANSDERMAL SYSTEM [Suspect]
     Indication: PAIN
     Route: 062
  2. OXYCODONE [Suspect]
     Indication: PAIN
     Route: 065

REACTIONS (5)
  - ACTIVITIES OF DAILY LIVING IMPAIRED [None]
  - CONSTIPATION [None]
  - DISTURBANCE IN ATTENTION [None]
  - INTESTINAL FUNCTIONAL DISORDER [None]
  - SOMNOLENCE [None]
